FAERS Safety Report 18799027 (Version 3)
Quarter: 2021Q1

REPORT INFORMATION
  Report Type: Spontaneous
  Country: JP (occurrence: JP)
  Receive Date: 20210128
  Receipt Date: 20210315
  Transmission Date: 20210419
  Serious: Yes (Disabling, Other)
  Sender: FDA-Public Use
  Company Number: JP-GLAXOSMITHKLINE-JP2021JPN017077

PATIENT
  Age: 75 Year
  Sex: Female

DRUGS (10)
  1. RELVAR ELLIPTA [Suspect]
     Active Substance: FLUTICASONE FUROATE\VILANTEROL TRIFENATATE
     Dosage: 200 ?G, QD
     Route: 055
     Dates: start: 20190930, end: 2021
  2. PREDONINE [Suspect]
     Active Substance: PREDNISOLONE
     Indication: RHEUMATIC DISORDER
     Dosage: 5 MG
     Route: 048
     Dates: end: 202008
  3. PREDONINE [Suspect]
     Active Substance: PREDNISOLONE
     Dosage: UNK MG
     Route: 048
     Dates: start: 202008
  4. PREDONINE [Suspect]
     Active Substance: PREDNISOLONE
     Dosage: 1 MG
     Route: 048
     Dates: end: 20210126
  5. RELVAR ELLIPTA [Suspect]
     Active Substance: FLUTICASONE FUROATE\VILANTEROL TRIFENATATE
     Indication: ASTHMA
     Dosage: 100 ?G, QD
     Route: 055
     Dates: start: 20190729, end: 20190930
  6. PRANLUKAST TABLET [Concomitant]
     Indication: ASTHMA
     Dosage: 450 MG
     Route: 048
  7. ROSUVASTATIN CALCIUM TABLETS [Concomitant]
     Active Substance: ROSUVASTATIN CALCIUM
     Indication: DYSLIPIDAEMIA
     Dosage: 2.5 MG
     Route: 048
  8. METHOTREXATE TABLETS [Concomitant]
     Active Substance: METHOTREXATE
     Indication: RHEUMATOID ARTHRITIS
     Dosage: 4 MG
     Route: 048
  9. AMBROXOL HYDROCHLORIDE [Concomitant]
     Active Substance: AMBROXOL HYDROCHLORIDE
     Indication: ASTHMA
     Dosage: 45 MG
     Route: 048
     Dates: start: 2020
  10. RELVAR ELLIPTA [Suspect]
     Active Substance: FLUTICASONE FUROATE\VILANTEROL TRIFENATATE
     Dosage: 100 ?G, QD
     Route: 055
     Dates: start: 2021

REACTIONS (10)
  - Weight increased [Unknown]
  - Back pain [Not Recovered/Not Resolved]
  - Malaise [Not Recovered/Not Resolved]
  - Pharyngeal haemorrhage [Not Recovered/Not Resolved]
  - Hyperphagia [Unknown]
  - Wrong technique in product usage process [Unknown]
  - Fall [Unknown]
  - Exercise tolerance decreased [Unknown]
  - Adrenal insufficiency [Not Recovered/Not Resolved]
  - Oropharyngeal pain [Not Recovered/Not Resolved]

NARRATIVE: CASE EVENT DATE: 2019
